FAERS Safety Report 4783539-9 (Version None)
Quarter: 2005Q3

REPORT INFORMATION
  Report Type: 
  Country: None (occurrence: None)
  Receive Date: 20050929
  Receipt Date: 20050920
  Transmission Date: 20060218
  Serious: Yes (Death)
  Sender: FDA-Public Use
  Company Number: PHFR2005GB03140

PATIENT
  Sex: Female

DRUGS (2)
  1. HYDROXYUREA [Concomitant]
  2. GLEEVEC [Suspect]
     Indication: CHRONIC MYELOID LEUKAEMIA
     Dosage: 400MG/DAY
     Dates: start: 20030101

REACTIONS (1)
  - BRONCHIAL CARCINOMA [None]
